FAERS Safety Report 18427805 (Version 6)
Quarter: 2023Q4

REPORT INFORMATION
  Report Type: Spontaneous
  Country: US (occurrence: US)
  Receive Date: 20201026
  Receipt Date: 20231121
  Transmission Date: 20240110
  Serious: No
  Sender: FDA-Public Use
  Company Number: US-VERTEX PHARMACEUTICALS-2020-005683

PATIENT
  Age: 37 Year
  Sex: Male
  Weight: 79 kg

DRUGS (21)
  1. TRIKAFTA [Suspect]
     Active Substance: ELEXACAFTOR\IVACAFTOR\TEZACAFTOR
     Indication: Cystic fibrosis
     Dosage: 100MG ELEXACAFTOR/50MG TEZACAFTOR/75MG IVACAFTOR AND 150MG IVACAFTOR, FREQ. UNK.
     Route: 048
     Dates: start: 201911, end: 20200226
  2. TRIKAFTA [Suspect]
     Active Substance: ELEXACAFTOR\IVACAFTOR\TEZACAFTOR
     Dosage: MODIFIED DOSE 2 TABLETS(100MG ELEXA/50MG TEZA/75MG IVA) AM
     Route: 048
     Dates: start: 20200312
  3. TRIKAFTA [Suspect]
     Active Substance: ELEXACAFTOR\IVACAFTOR\TEZACAFTOR
     Dosage: 2 ORANGE TABS (100MG ELEXACAFTOR/50MG TEZACAFTOR/75MG IVACAFTOR) EVERY OTHER DAY, DISCARD BLUE TABS
     Route: 048
  4. TRIKAFTA [Suspect]
     Active Substance: ELEXACAFTOR\IVACAFTOR\TEZACAFTOR
     Dosage: ALTERNATING 2 ORANGE TABS DAILY WITH 1 ORANGE TAB, NO BLUE TABLETS
     Route: 048
  5. PULMOZYME [Concomitant]
     Active Substance: DORNASE ALFA
     Dosage: 1 MG/ML
  6. SINGULAIR [Concomitant]
     Active Substance: MONTELUKAST SODIUM
     Dosage: UNK
  7. FLONASE ALLERGY RELIEF [Concomitant]
     Active Substance: FLUTICASONE PROPIONATE
     Dosage: 1 SPRAY A DAY
  8. VITAMIN D3 [Concomitant]
     Active Substance: CHOLECALCIFEROL
     Dosage: 2000 UNIT CAPSULE
     Route: 048
  9. VITAMIN D3 [Concomitant]
     Active Substance: CHOLECALCIFEROL
     Dosage: 4000 UNITS
  10. ALBUTEROL SULFATE [Concomitant]
     Active Substance: ALBUTEROL SULFATE
     Dosage: 4 PUFFS A DAY
  11. OMEPRAZOLE [Concomitant]
     Active Substance: OMEPRAZOLE
     Dosage: UNK
  12. OMEPRAZOLE [Concomitant]
     Active Substance: OMEPRAZOLE
     Dosage: 40 MG
     Route: 048
  13. SODIUM CHLORIDE [Concomitant]
     Active Substance: SODIUM CHLORIDE
     Dosage: UNK
  14. CAYSTON [Concomitant]
     Active Substance: AZTREONAM
  15. URSODIOL [Concomitant]
     Active Substance: URSODIOL
     Dosage: 300MG CAPSULE
     Route: 048
  16. MIRALAX [Concomitant]
     Active Substance: POLYETHYLENE GLYCOL 3350
     Dosage: UNK, PRN
  17. ASTELIN [Concomitant]
     Active Substance: AZELASTINE HYDROCHLORIDE
  18. VITAMIN E [Concomitant]
     Active Substance: .ALPHA.-TOCOPHEROL
     Dosage: 1000 UT
     Route: 048
  19. LEXAPRO [Concomitant]
     Active Substance: ESCITALOPRAM OXALATE
     Dosage: 10MG
     Route: 048
  20. ALBUTEROL [Concomitant]
     Active Substance: ALBUTEROL
  21. FLUTICASONE PROPIONATE [Concomitant]
     Active Substance: FLUTICASONE PROPIONATE
     Dosage: 50MCG

REACTIONS (5)
  - Insomnia [Recovered/Resolved]
  - Gamma-glutamyltransferase increased [Recovered/Resolved]
  - Blood bilirubin increased [Recovered/Resolved]
  - Alanine aminotransferase increased [Recovered/Resolved]
  - Aspartate aminotransferase increased [Recovered/Resolved]

NARRATIVE: CASE EVENT DATE: 20200114
